FAERS Safety Report 24955515 (Version 1)
Quarter: 2025Q1

REPORT INFORMATION
  Report Type: Spontaneous
  Country: US (occurrence: US)
  Receive Date: 20250211
  Receipt Date: 20250211
  Transmission Date: 20250408
  Serious: Yes (Hospitalization, Other)
  Sender: SANOFI AVENTIS
  Company Number: US-DialogSolutions-SAAVPROD-PI738790-C5

PATIENT

DRUGS (4)
  1. ANTI-THYMOCYTE GLOBULIN (RABBIT) NOS [Suspect]
     Active Substance: LAPINE T-LYMPHOCYTE IMMUNE GLOBULIN
     Indication: Heart transplant
  2. TACROLIMUS [Suspect]
     Active Substance: TACROLIMUS
     Indication: Heart transplant
  3. MYCOPHENOLATE MOFETIL [Suspect]
     Active Substance: MYCOPHENOLATE MOFETIL
     Indication: Heart transplant
  4. MILRINONE [Concomitant]
     Active Substance: MILRINONE
     Indication: Diastolic dysfunction

REACTIONS (2)
  - Acute kidney injury [Unknown]
  - Transplant rejection [Recovered/Resolved]
